FAERS Safety Report 22094522 (Version 1)
Quarter: 2023Q1

REPORT INFORMATION
  Report Type: Spontaneous
  Country: US (occurrence: US)
  Receive Date: 20230314
  Receipt Date: 20230314
  Transmission Date: 20230418
  Serious: Yes (Other)
  Sender: FDA-Public Use
  Company Number: US-TEVA-2023-US-2866340

PATIENT
  Age: 59 Year

DRUGS (1)
  1. QVAR REDIHALER [Suspect]
     Active Substance: BECLOMETHASONE DIPROPIONATE
     Indication: Asthma
     Dosage: 640 MICROGRAM DAILY; 80 MCG, 4 PUFFS TWICE DAILY

REACTIONS (2)
  - Atrial fibrillation [Unknown]
  - Product use issue [Unknown]
